FAERS Safety Report 12094946 (Version 1)
Quarter: 2016Q1

REPORT INFORMATION
  Report Type: Spontaneous
  Country: SE (occurrence: SE)
  Receive Date: 20160219
  Receipt Date: 20160219
  Transmission Date: 20160526
  Serious: Yes (Hospitalization)
  Sender: FDA-Public Use
  Company Number: SE-PERNIX THERAPEUTICS-2015PT000163

PATIENT

DRUGS (2)
  1. WARAN [Concomitant]
     Active Substance: WARFARIN SODIUM
  2. CEDAX [Suspect]
     Active Substance: CEFTIBUTEN DIHYDRATE
     Indication: URINARY TRACT INFECTION
     Dosage: 400 MG, QD
     Dates: end: 20141123

REACTIONS (2)
  - Skin reaction [Recovered/Resolved]
  - Dyspnoea [Recovered/Resolved]

NARRATIVE: CASE EVENT DATE: 201411
